FAERS Safety Report 6418766-8 (Version None)
Quarter: 2009Q4

REPORT INFORMATION
  Report Type: 
  Country: None (occurrence: None)
  Receive Date: 20091028
  Receipt Date: 20091009
  Transmission Date: 20100525
  Serious: No
  Sender: FDA-Public Use
  Company Number: US-ALLERGAN-0914021US

PATIENT
  Age: 80 Year
  Sex: Male

DRUGS (1)
  1. ACUVAIL [Suspect]
     Indication: DRUG USE FOR UNKNOWN INDICATION
     Dosage: UNK
     Route: 047
     Dates: start: 20091008

REACTIONS (2)
  - EYE PAIN [None]
  - EYE PRURITUS [None]
